FAERS Safety Report 9953620 (Version 1)
Quarter: 2014Q1

REPORT INFORMATION
  Report Type: Spontaneous
  Country: US (occurrence: US)
  Receive Date: 20140304
  Receipt Date: 20140304
  Transmission Date: 20141002
  Serious: Yes (Other)
  Sender: FDA-Public Use
  Company Number: US-AMGEN-USASP2013090660

PATIENT
  Age: 48 Year
  Sex: Female
  Weight: 108.84 kg

DRUGS (1)
  1. ENBREL [Suspect]
     Indication: PSORIATIC ARTHROPATHY
     Dosage: 50 MG, QWK
     Route: 058
     Dates: start: 20130801

REACTIONS (3)
  - Pneumonia [Recovered/Resolved]
  - Rhinorrhoea [Not Recovered/Not Resolved]
  - Vaginal infection [Recovered/Resolved]
